FAERS Safety Report 11553690 (Version 1)
Quarter: 2015Q3

REPORT INFORMATION
  Report Type: Spontaneous
  Country: US (occurrence: US)
  Receive Date: 20150925
  Receipt Date: 20150925
  Transmission Date: 20151125
  Serious: Yes (Hospitalization)
  Sender: FDA-Public Use
  Company Number: US-BAXTER-2015BAX052074

PATIENT
  Age: 65 Year
  Sex: Female

DRUGS (1)
  1. DIANEAL LOW CALCIUM PERITONEAL DIALYSIS SOLUTION WITH DEXTROSE [Suspect]
     Active Substance: CALCIUM CHLORIDE\DEXTROSE\MAGNESIUM CHLORIDE\SODIUM CHLORIDE\SODIUM LACTATE
     Indication: PERITONEAL DIALYSIS
     Route: 033

REACTIONS (5)
  - Blood magnesium abnormal [Recovering/Resolving]
  - Congenital cystic kidney disease [Recovering/Resolving]
  - Blood calcium abnormal [Recovering/Resolving]
  - Blood potassium abnormal [Recovering/Resolving]
  - Kidney rupture [Recovering/Resolving]

NARRATIVE: CASE EVENT DATE: 20150813
